FAERS Safety Report 6302889-8 (Version None)
Quarter: 2009Q3

REPORT INFORMATION
  Report Type: 
  Country: None (occurrence: None)
  Receive Date: 20090810
  Receipt Date: 20090805
  Transmission Date: 20100115
  Serious: Yes (Other)
  Sender: FDA-Public Use
  Company Number: US-AVENTIS-200916925US

PATIENT
  Sex: Male
  Weight: 96.16 kg

DRUGS (4)
  1. LANTUS [Suspect]
     Indication: TYPE 2 DIABETES MELLITUS
     Route: 058
     Dates: start: 20090101
  2. ANTIHYPERTENSIVES [Concomitant]
     Dosage: DOSE: UNK
  3. CHOLESTEROL- AND TRIGLYCERIDE REDUCERS [Concomitant]
     Dosage: DOSE: UNK
  4. DRUG USED IN DIABETES [Concomitant]
     Dosage: DOSE: UNK

REACTIONS (2)
  - HEPATIC CANCER METASTATIC [None]
  - LUNG CANCER METASTATIC [None]
